FAERS Safety Report 16365348 (Version 6)
Quarter: 2019Q3

REPORT INFORMATION
  Report Type: Spontaneous
  Country: JP (occurrence: JP)
  Receive Date: 20190529
  Receipt Date: 20190806
  Transmission Date: 20191004
  Serious: Yes (Other)
  Sender: FDA-Public Use
  Company Number: JP-BRISTOL-MYERS SQUIBB COMPANY-BMS-2019-051791

PATIENT
  Age: 81 Year
  Sex: Male
  Weight: 72.7 kg

DRUGS (4)
  1. OPDIVO [Suspect]
     Active Substance: NIVOLUMAB
     Indication: PRODUCT USED FOR UNKNOWN INDICATION
     Dosage: 210 MG  (17-MAR-2018,14-APR-2018,28-APR-2018,12-MAY-2018,26-MAY-2018,09-JUN-2018)
     Route: 041
     Dates: start: 20180303, end: 20180707
  2. OPDIVO [Suspect]
     Active Substance: NIVOLUMAB
     Indication: PRODUCT USED FOR UNKNOWN INDICATION
     Dosage: 210 MG (10-AUG-2018,24-AUG-2018,28-SEP-2018)
     Route: 041
     Dates: start: 20180727
  3. OPDIVO [Suspect]
     Active Substance: NIVOLUMAB
     Indication: PRODUCT USED FOR UNKNOWN INDICATION
     Dosage: 210 MILLIGRAM 13-NOV-2017,27-NOV-2017,11-DEC-2017,25-DEC-2017,09-JAN-2018, 22-JAN-2018,05-FEB-2018
     Route: 041
     Dates: start: 20171028, end: 20180217
  4. OPDIVO [Suspect]
     Active Substance: NIVOLUMAB
     Indication: HEAD AND NECK CANCER
     Dosage: 216 MG
     Route: 041
     Dates: start: 20171014, end: 20171014

REACTIONS (3)
  - Upper respiratory tract inflammation [Recovered/Resolved]
  - Anastomotic stenosis [Recovered/Resolved]
  - Eczema [Recovered/Resolved]

NARRATIVE: CASE EVENT DATE: 20171204
